FAERS Safety Report 4898937-2 (Version None)
Quarter: 2006Q1

REPORT INFORMATION
  Report Type: 
  Country: None (occurrence: None)
  Receive Date: 20060202
  Receipt Date: 20060124
  Transmission Date: 20060701
  Serious: Yes (Other)
  Sender: FDA-Public Use
  Company Number: SE-JNJFOC-20051102022

PATIENT
  Age: 65 Year
  Sex: Female

DRUGS (18)
  1. REMICADE [Suspect]
     Route: 042
  2. REMICADE [Suspect]
     Indication: RHEUMATOID ARTHRITIS
     Route: 042
  3. IMUREL [Suspect]
     Indication: DRUG USE FOR UNKNOWN INDICATION
     Route: 048
  4. TREO COMP [Concomitant]
     Route: 065
  5. TREO COMP [Concomitant]
     Route: 065
  6. TREO COMP [Concomitant]
     Route: 065
  7. PREDNISOLONE [Concomitant]
     Route: 065
  8. PREMELLE [Concomitant]
     Route: 065
  9. PREMELLE [Concomitant]
     Route: 065
  10. NITRAZEPAM [Concomitant]
     Route: 065
  11. MYCOSTATIN [Concomitant]
     Route: 048
  12. TENORMIN [Concomitant]
     Route: 065
  13. CITODON [Concomitant]
     Route: 065
  14. CITODON [Concomitant]
     Route: 065
  15. NORVASC [Concomitant]
     Route: 065
  16. PRAVACHOL [Concomitant]
     Route: 065
  17. IMDUR [Concomitant]
     Route: 065
  18. CYANOCOBALAMIN [Concomitant]
     Route: 065

REACTIONS (1)
  - BASAL CELL CARCINOMA [None]
